FAERS Safety Report 5997996-3 (Version None)
Quarter: 2008Q4

REPORT INFORMATION
  Report Type: 
  Country: None (occurrence: None)
  Receive Date: 20081211
  Receipt Date: 20081114
  Transmission Date: 20090506
  Serious: Yes (Hospitalization)
  Sender: FDA-Public Use
  Company Number: 2008002990

PATIENT
  Sex: Male
  Weight: 58.0604 kg

DRUGS (7)
  1. ERLOTINIB [Suspect]
     Indication: NON-SMALL CELL LUNG CANCER
     Dosage: (150 MG,GD), ORAL
     Route: 048
     Dates: start: 20080922, end: 20081112
  2. SORAFENIB [Suspect]
     Dosage: (800 MG,QD), ORAL
     Route: 048
     Dates: start: 20080922, end: 20081112
  3. COUMADIN [Concomitant]
  4. MORPHINE [Concomitant]
  5. CHLORPROMAZINE [Concomitant]
  6. LASIX [Concomitant]
  7. DURAGESIC-100 [Concomitant]

REACTIONS (9)
  - ATELECTASIS [None]
  - HAEMOGLOBIN DECREASED [None]
  - HAEMOPTYSIS [None]
  - HYPOXIA [None]
  - INTERNATIONAL NORMALISED RATIO INCREASED [None]
  - LUNG CONSOLIDATION [None]
  - LYMPHADENOPATHY MEDIASTINAL [None]
  - MALIGNANT NEOPLASM PROGRESSION [None]
  - PROTHROMBIN TIME PROLONGED [None]
